FAERS Safety Report 6699401-0 (Version None)
Quarter: 2010Q2

REPORT INFORMATION
  Report Type: 
  Country: None (occurrence: None)
  Receive Date: 20100427
  Receipt Date: 20100419
  Transmission Date: 20101027
  Serious: Yes (Hospitalization, Other)
  Sender: FDA-Public Use
  Company Number: US-AMGEN-QUU407321

PATIENT
  Sex: Male

DRUGS (2)
  1. NPLATE [Suspect]
     Indication: IDIOPATHIC THROMBOCYTOPENIC PURPURA
     Dates: start: 20090402, end: 20090409
  2. CORTICOSTEROIDS [Concomitant]
     Dates: start: 20090114

REACTIONS (2)
  - EPISTAXIS [None]
  - THROMBOCYTOPENIA [None]
